FAERS Safety Report 7764222-4 (Version None)
Quarter: 2011Q3

REPORT INFORMATION
  Report Type: 
  Country: None (occurrence: None)
  Receive Date: 20110916
  Receipt Date: 20110902
  Transmission Date: 20111222
  Serious: Yes (Hospitalization)
  Sender: FDA-Public Use
  Company Number: 1000023588

PATIENT
  Age: 75 Year
  Sex: Female

DRUGS (7)
  1. BISOPROLOL FUMARATE [Concomitant]
  2. LANITOP (METILDIGOXIN) [Concomitant]
  3. FOSFOMYCIN (FOSFOMYCIN TROMETAMOL) (3 GRAM, GRANULATE) [Suspect]
     Indication: DYSURIA
     Dosage: (3 GM, ONCE), ORAL
     Route: 048
     Dates: start: 20110402, end: 20110402
  4. LEVOTHYROXINE SODIUM [Concomitant]
  5. PANTORC (PANTOPRAZOLE SODIUM SESQUIHYDRATE) [Concomitant]
  6. RYTMONORM (PROPAFENONE) [Concomitant]
  7. COUMADIN [Concomitant]

REACTIONS (6)
  - ODYNOPHAGIA [None]
  - DYSPHAGIA [None]
  - SALIVARY HYPERSECRETION [None]
  - TONGUE HAEMATOMA [None]
  - MACROGLOSSIA [None]
  - DYSPNOEA [None]
